FAERS Safety Report 4760297-5 (Version None)
Quarter: 2005Q3

REPORT INFORMATION
  Report Type: 
  Country: None (occurrence: None)
  Receive Date: 20050831
  Receipt Date: 20050808
  Transmission Date: 20060218
  Serious: Yes (Death)
  Sender: FDA-Public Use
  Company Number: 2005BH001100

PATIENT
  Sex: Male

DRUGS (11)
  1. 0.9% SODIUM CHLORIDE INJECTION IN PLASTIC CONTAINER (SODIUM CHLORIDE) [Suspect]
     Dosage: 0.9 PCT;
  2. COMBIVENT [Suspect]
     Dosage: 2.5 ML; EVERY DAY; INH
     Route: 055
  3. TIOTROPIUM BROMIDE (TIOTROPIUM BROMIDE) [Suspect]
     Dosage: 18 UG; EVERY DAY; INH
     Route: 055
  4. FLUTICASONE W/SALMETEROL (GALENIC /FLUTICASONE/ SALMETEROL/) [Suspect]
     Dosage: ; 2X A DAY; INH
     Route: 055
  5. PREDNISONE [Suspect]
     Dosage: 5 MG;
  6. AMLODIPINE [Suspect]
     Dosage: 5 MG; 2X A DAY; PO
     Route: 048
  7. CIPROFLOXACIN HCL [Suspect]
     Dosage: 250 MG; 2X A DAY;
  8. TRIMETHOPRIM [Suspect]
     Dosage: 200 MG; 2X A DAY;
  9. FUROSEMIDE [Suspect]
     Dosage: 40 MG; EVERY DAY;
  10. INSTILLAGEL (LIDOCAINE HYDROCHLORIDE) [Suspect]
     Dosage: 11 ML; EVERY DAY;
  11. CLOTRIMAZOLE (CLOTRIMAZOLE) [Suspect]
     Dosage: 1 PCT;

REACTIONS (4)
  - CARDIAC FAILURE CONGESTIVE [None]
  - CHRONIC OBSTRUCTIVE PULMONARY DISEASE [None]
  - CYSTITIS [None]
  - DIZZINESS [None]
